FAERS Safety Report 10358350 (Version 2)
Quarter: 2014Q3

REPORT INFORMATION
  Report Type: Spontaneous
  Country: US (occurrence: US)
  Receive Date: 20140801
  Receipt Date: 20140801
  Transmission Date: 20150326
  Serious: Yes (Hospitalization, Other)
  Sender: FDA-Public Use
  Company Number: US-009507513-2010SP004919

PATIENT
  Sex: Female
  Weight: 72.58 kg

DRUGS (1)
  1. NUVARING [Suspect]
     Active Substance: ETHINYL ESTRADIOL\ETONOGESTREL
     Indication: CONTRACEPTION
     Dates: start: 2006, end: 200806

REACTIONS (10)
  - Hyponatraemia [Unknown]
  - Osteoarthritis [Unknown]
  - Pulmonary embolism [Recovered/Resolved]
  - Haemorrhoids [Unknown]
  - Urinary tract infection [Unknown]
  - Pulmonary haemorrhage [Unknown]
  - Ligament sprain [Unknown]
  - Musculoskeletal disorder [Unknown]
  - Pleurisy [Unknown]
  - Smear cervix abnormal [Unknown]

NARRATIVE: CASE EVENT DATE: 200603
